FAERS Safety Report 7940131-2 (Version None)
Quarter: 2011Q4

REPORT INFORMATION
  Report Type: 
  Country: None (occurrence: None)
  Receive Date: 20111125
  Receipt Date: 20111114
  Transmission Date: 20120403
  Serious: Yes (Hospitalization, Other)
  Sender: FDA-Public Use
  Company Number: US-ELI_LILLY_AND_COMPANY-US201101004510

PATIENT
  Sex: Female

DRUGS (16)
  1. LISINOPRIL [Concomitant]
  2. CINNAMON [Concomitant]
  3. SYMBICORT [Concomitant]
  4. FORTEO [Suspect]
     Indication: OSTEOPOROSIS
     Dosage: 20 UG, DAILY (1/D)
     Route: 058
  5. ANAESTHETICS [Concomitant]
  6. PRAVASTATIN [Concomitant]
  7. GLUCOSAMINE CHONDROITIN [Concomitant]
  8. FORTEO [Suspect]
     Dosage: 20 UG, QD
     Route: 058
  9. FORTEO [Suspect]
     Dosage: 20 UG, QD
     Route: 058
  10. CALCIUM [Concomitant]
  11. VITAMIN D [Concomitant]
  12. STOOL SOFTENER [Concomitant]
  13. CARVEDILOL [Concomitant]
  14. FISH OIL [Concomitant]
  15. FORTEO [Suspect]
     Dosage: 20 UG, QD
     Route: 058
  16. GLUCERNA [Concomitant]

REACTIONS (12)
  - CATARACT [None]
  - EXOSTOSIS [None]
  - CARDIAC DISORDER [None]
  - CARDIOMEGALY [None]
  - DRUG DOSE OMISSION [None]
  - BLOOD CALCIUM ABNORMAL [None]
  - WEIGHT DECREASED [None]
  - INJECTION SITE PAIN [None]
  - HEARING IMPAIRED [None]
  - VISUAL IMPAIRMENT [None]
  - LIVER DISORDER [None]
  - IMPLANTABLE DEFIBRILLATOR INSERTION [None]
